FAERS Safety Report 4829300-8 (Version None)
Quarter: 2005Q4

REPORT INFORMATION
  Report Type: 
  Country: None (occurrence: None)
  Receive Date: 20051116
  Receipt Date: 20051103
  Transmission Date: 20060501
  Serious: Yes (Other)
  Sender: FDA-Public Use
  Company Number: PHEH2005US12171

PATIENT
  Age: 67 Year
  Sex: Female
  Weight: 102 kg

DRUGS (10)
  1. ZELNORM [Suspect]
     Indication: CONSTIPATION
     Dosage: 6 MG, BID
     Route: 048
     Dates: start: 20050913, end: 20051101
  2. MOBIC [Concomitant]
     Dosage: 7.5 MG, QD
  3. LISINOPRIL [Concomitant]
     Dosage: 20 MG, QD
  4. ALLOPURINOL [Concomitant]
     Dosage: 300 MG, QD
  5. LASIX [Concomitant]
     Dosage: 40 MG, QD
  6. ATENOLOL [Concomitant]
     Dosage: 50 MG, QD
  7. NITROGLYCERIN [Concomitant]
     Dosage: 0.2 MG/H, UNK
  8. GLUCOTROL [Concomitant]
     Dosage: 5 MG, QD
  9. NOVOLIN R [Concomitant]
     Dosage: UNK, QD
  10. ADVAIR DISKUS 100/50 [Concomitant]

REACTIONS (4)
  - BLOOD GLUCOSE INCREASED [None]
  - BLOOD POTASSIUM INCREASED [None]
  - CONSTIPATION [None]
  - DRUG INEFFECTIVE [None]
